FAERS Safety Report 10565200 (Version 2)
Quarter: 2014Q4

REPORT INFORMATION
  Report Type: Spontaneous
  Country: JP (occurrence: None)
  Receive Date: 20141103
  Receipt Date: 20141202
  Transmission Date: 20150529
  Serious: Yes (Hospitalization, Other)
  Sender: FDA-Public Use
  Company Number: JP-017523

PATIENT
  Age: 75 Year
  Sex: Male
  Weight: 51 kg

DRUGS (10)
  1. DEGARELIX [Suspect]
     Active Substance: DEGARELIX
     Indication: PROSTATE CANCER METASTATIC
     Route: 058
     Dates: start: 20130517, end: 20130517
  2. PREDONINE [Concomitant]
     Active Substance: PREDNISOLONE\PREDNISOLONE ACETATE\PREDNISOLONE SODIUM SUCCINATE
  3. SENNA [Concomitant]
     Active Substance: SENNA LEAF\SENNOSIDES\SENNOSIDES A AND B
  4. PROSEXOL [Suspect]
     Active Substance: ETHINYL ESTRADIOL
     Indication: PROSTATE CANCER METASTATIC
     Route: 048
     Dates: start: 20140401
  5. LENDORMIN [Concomitant]
     Active Substance: BROTIZOLAM
  6. CONIEL [Concomitant]
     Active Substance: BENIDIPINE HYDROCHLORIDE
  7. BLOPRESS [Concomitant]
     Active Substance: CANDESARTAN CILEXETIL
  8. CASODEX [Concomitant]
     Active Substance: BICALUTAMIDE
  9. ALEVIATIN [Concomitant]
     Active Substance: PHENYTOIN SODIUM
  10. AZUCURENIN S [Concomitant]
     Active Substance: GLUTAMINE

REACTIONS (2)
  - Cerebral infarction [None]
  - Hand fracture [None]

NARRATIVE: CASE EVENT DATE: 201308
